FAERS Safety Report 9375855 (Version 1)
Quarter: 2013Q2

REPORT INFORMATION
  Report Type: Spontaneous
  Country: US (occurrence: US)
  Receive Date: 20130628
  Receipt Date: 20130628
  Transmission Date: 20140414
  Serious: Yes (Other)
  Sender: FDA-Public Use
  Company Number: US-ASTRAZENECA-2013SE47696

PATIENT
  Age: 59 Year
  Sex: Female
  Weight: 117.9 kg

DRUGS (16)
  1. SEROQUEL XR [Suspect]
     Indication: AFFECT LABILITY
     Dosage: QUETIAPINE
     Route: 065
     Dates: end: 201305
  2. SEROQUEL XR [Suspect]
     Indication: RESTLESSNESS
     Dosage: QUETIAPINE
     Route: 065
     Dates: end: 201305
  3. SEROQUEL XR [Suspect]
     Indication: AFFECT LABILITY
     Route: 048
     Dates: start: 201305
  4. SEROQUEL XR [Suspect]
     Indication: RESTLESSNESS
     Route: 048
     Dates: start: 201305
  5. EFFEXOR XL [Concomitant]
     Indication: MALAISE
     Dates: start: 201304
  6. AMBIEN [Concomitant]
     Indication: RESTLESSNESS
  7. CYCLOBENZAPRINE [Concomitant]
     Indication: MUSCLE RELAXANT THERAPY
     Dates: start: 2012
  8. CLONAZEPAM [Concomitant]
     Indication: RESTLESSNESS
     Dates: start: 201305
  9. LORATADINE [Concomitant]
     Indication: MULTIPLE ALLERGIES
  10. XANAX [Concomitant]
     Indication: MALAISE
     Dates: start: 201305
  11. PHENERGAN [Concomitant]
     Indication: ABDOMINAL DISCOMFORT
     Dates: start: 2012
  12. TREXIMET [Concomitant]
     Indication: MIGRAINE
     Dosage: 85-500MG PRN
     Dates: start: 2011
  13. LYRICA [Concomitant]
     Indication: FIBROMYALGIA
     Dates: start: 2012
  14. RANITIDINE HCL [Concomitant]
     Indication: DYSPEPSIA
  15. NAPROXEN [Concomitant]
     Indication: OEDEMA PERIPHERAL
     Dates: start: 2012
  16. TOPAMAX [Concomitant]
     Indication: MIGRAINE
     Dates: start: 2010

REACTIONS (9)
  - Road traffic accident [Unknown]
  - Foot fracture [Unknown]
  - Crying [Unknown]
  - Nasopharyngitis [Recovering/Resolving]
  - Affect lability [Unknown]
  - Memory impairment [Unknown]
  - Therapeutic response unexpected [Unknown]
  - Off label use [Unknown]
  - Drug ineffective [Unknown]
